FAERS Safety Report 10028161 (Version 2)
Quarter: 2014Q2

REPORT INFORMATION
  Report Type: Report from Study
  Country: JP (occurrence: None)
  Receive Date: 20140306
  Receipt Date: 20140416
  Transmission Date: 20141212
  Serious: Yes (Hospitalization)
  Sender: FDA-Public Use
  Company Number: B0873040A

PATIENT
  Age: 63 Year
  Sex: Male
  Weight: 66.86 kg

DRUGS (6)
  1. VOTRIENT TABLET (PAZOPANIB) [Suspect]
     Indication: ANGIOSARCOMA
     Route: 048
     Dates: start: 20130208
  2. TELMISARTAN [Concomitant]
  3. ALLOPURINOL [Concomitant]
  4. ATORVASTATIN CALCIUM [Concomitant]
  5. NIFEDIPINE [Concomitant]
  6. MISOPROSTOL [Concomitant]

REACTIONS (11)
  - Blood thyroid stimulating hormone increased [None]
  - Hepatic enzyme increased [None]
  - Pancytopenia [None]
  - Blood pressure fluctuation [None]
  - Proteinuria [None]
  - Toxicity to various agents [None]
  - Impaired healing [None]
  - Rash [None]
  - Oedema [None]
  - Pain [None]
  - Insomnia [None]
